FAERS Safety Report 17864219 (Version 1)
Quarter: 2020Q2

REPORT INFORMATION
  Report Type: Report from Study
  Country: AR (occurrence: AR)
  Receive Date: 20200605
  Receipt Date: 20200605
  Transmission Date: 20200714
  Serious: Yes (Life-Threatening, Hospitalization, Other)
  Sender: FDA-Public Use
  Company Number: NVSC2019AR030755

PATIENT
  Age: 9 Year
  Sex: Female

DRUGS (2)
  1. REVOLADE [Suspect]
     Active Substance: ELTROMBOPAG
     Dosage: 75 MG
     Route: 065
     Dates: start: 201911
  2. REVOLADE [Suspect]
     Active Substance: ELTROMBOPAG
     Indication: IMMUNE THROMBOCYTOPENIA
     Dosage: 75 MG, QD
     Route: 065
     Dates: start: 20170701

REACTIONS (8)
  - Tonsillitis [Unknown]
  - Contusion [Recovering/Resolving]
  - Contusion [Recovered/Resolved]
  - Immune thrombocytopenia [Recovering/Resolving]
  - Petechiae [Recovered/Resolved]
  - Drug ineffective [Recovering/Resolving]
  - Platelet count decreased [Recovering/Resolving]
  - Disease recurrence [Recovering/Resolving]

NARRATIVE: CASE EVENT DATE: 201911
